FAERS Safety Report 8385456-4 (Version None)
Quarter: 2012Q2

REPORT INFORMATION
  Report Type: 
  Country: None (occurrence: None)
  Receive Date: 20120525
  Receipt Date: 20120516
  Transmission Date: 20120825
  Serious: No
  Sender: FDA-Public Use
  Company Number: US-BIOGENIDEC-2012BI017826

PATIENT
  Age: 47 Year
  Sex: Female

DRUGS (1)
  1. TYSABRI [Suspect]
     Indication: MULTIPLE SCLEROSIS
     Route: 042
     Dates: start: 20110913

REACTIONS (9)
  - PAIN [None]
  - SKIN BURNING SENSATION [None]
  - VITAMIN D ABNORMAL [None]
  - MALAISE [None]
  - MULTIPLE SCLEROSIS [None]
  - FUNGAL INFECTION [None]
  - ABASIA [None]
  - INSOMNIA [None]
  - MUSCULOSKELETAL DISORDER [None]
